FAERS Safety Report 13749601 (Version 1)
Quarter: 2017Q3

REPORT INFORMATION
  Report Type: Spontaneous
  Country: US (occurrence: US)
  Receive Date: 20170713
  Receipt Date: 20170713
  Transmission Date: 20171127
  Serious: Yes (Other)
  Sender: FDA-Public Use
  Company Number: None

PATIENT
  Age: 68 Year
  Sex: Male
  Weight: 71.73 kg

DRUGS (1)
  1. ABILIFY [Suspect]
     Active Substance: ARIPIPRAZOLE
     Indication: DEPRESSION
     Route: 048
     Dates: start: 20170501, end: 20170703

REACTIONS (3)
  - Sleep disorder [None]
  - Obsessive thoughts [None]
  - Obsessive-compulsive disorder [None]

NARRATIVE: CASE EVENT DATE: 20170711
